FAERS Safety Report 6061631-9 (Version None)
Quarter: 2009Q1

REPORT INFORMATION
  Report Type: 
  Country: None (occurrence: None)
  Receive Date: 20090202
  Receipt Date: 20090127
  Transmission Date: 20090719
  Serious: Yes (Death, Hospitalization)
  Sender: FDA-Public Use
  Company Number: A0765303A

PATIENT
  Age: 84 Year
  Sex: Male

DRUGS (9)
  1. ADVAIR DISKUS 100/50 [Suspect]
     Indication: EMPHYSEMA
     Route: 055
     Dates: start: 20070401, end: 20080610
  2. ADVAIR DISKUS 100/50 [Concomitant]
  3. SPIRIVA [Concomitant]
  4. DIURETIC [Concomitant]
  5. POTASSIUM CHLORIDE [Concomitant]
  6. VITAMINS [Concomitant]
  7. GINKO BILOBA [Concomitant]
  8. GINSENG [Concomitant]
  9. LEVAQUIN [Concomitant]

REACTIONS (3)
  - DEATH [None]
  - PNEUMONIA [None]
  - STAPHYLOCOCCAL INFECTION [None]
